FAERS Safety Report 6999697-1 (Version None)
Quarter: 2010Q3

REPORT INFORMATION
  Report Type: 
  Country: None (occurrence: None)
  Receive Date: 20100920
  Receipt Date: 20100208
  Transmission Date: 20110219
  Serious: No
  Sender: FDA-Public Use
  Company Number: US-ASTRAZENECA-2009SE33239

PATIENT
  Age: 576 Month
  Sex: Female
  Weight: 95.3 kg

DRUGS (4)
  1. SEROQUEL [Suspect]
     Indication: BIPOLAR DISORDER
     Route: 048
     Dates: start: 20020101
  2. SEROQUEL [Suspect]
     Indication: MANIA
     Route: 048
     Dates: start: 20020101
  3. SEROQUEL [Suspect]
     Route: 048
     Dates: start: 20030101, end: 20090301
  4. SEROQUEL [Suspect]
     Route: 048
     Dates: start: 20030101, end: 20090301

REACTIONS (6)
  - BLOOD CHOLESTEROL INCREASED [None]
  - BLOOD TRIGLYCERIDES INCREASED [None]
  - DIABETES MELLITUS [None]
  - HYPERLIPIDAEMIA [None]
  - OBESITY [None]
  - WEIGHT INCREASED [None]
